FAERS Safety Report 9110968 (Version 1)
Quarter: 2013Q1

REPORT INFORMATION
  Report Type: Spontaneous
  Country: US (occurrence: US)
  Receive Date: 20130219
  Receipt Date: 20130219
  Transmission Date: 20140127
  Serious: No
  Sender: FDA-Public Use
  Company Number: US-BRISTOL-MYERS SQUIBB COMPANY-16861981

PATIENT
  Age: 47 Year
  Sex: Female

DRUGS (4)
  1. ABATACEPT SUBQ INJECTION 125MG/ML [Suspect]
     Indication: RHEUMATOID ARTHRITIS
     Dosage: STARTED ABOUT 3 YEARS AGO WITH INF
     Route: 058
  2. METHOTREXATE [Concomitant]
  3. LUTERAN [Concomitant]
  4. FOLIC ACID [Concomitant]

REACTIONS (1)
  - Bronchitis [Unknown]
